FAERS Safety Report 4705820-1 (Version None)
Quarter: 2005Q3

REPORT INFORMATION
  Report Type: 
  Country: None (occurrence: None)
  Receive Date: 20050701
  Receipt Date: 20050622
  Transmission Date: 20060218
  Serious: Yes (Hospitalization)
  Sender: FDA-Public Use
  Company Number: US-JNJFOC-20050103490

PATIENT
  Sex: Female
  Weight: 68.04 kg

DRUGS (26)
  1. INFLIXIMAB [Suspect]
     Route: 042
  2. INFLIXIMAB [Suspect]
     Indication: RHEUMATOID ARTHRITIS
     Route: 042
  3. HUMIRA [Concomitant]
  4. PAXIL [Concomitant]
  5. DETROL [Concomitant]
  6. TYLENOL [Concomitant]
  7. FLEXERIL [Concomitant]
  8. METHADONE HCL [Concomitant]
  9. VITAMIN E [Concomitant]
  10. MULTI-VITAMIN [Concomitant]
  11. MULTI-VITAMIN [Concomitant]
  12. MULTI-VITAMIN [Concomitant]
  13. MULTI-VITAMIN [Concomitant]
  14. MULTI-VITAMIN [Concomitant]
  15. MULTI-VITAMIN [Concomitant]
  16. MULTI-VITAMIN [Concomitant]
  17. MULTI-VITAMIN [Concomitant]
  18. PROTONIX [Concomitant]
  19. PREDNISONE [Concomitant]
  20. PREDNISONE [Concomitant]
  21. NEURONTIN [Concomitant]
  22. ARAVA [Concomitant]
  23. FERROUS SULFATE [Concomitant]
  24. CHOLESTYRAMINE [Concomitant]
  25. NEXIUM [Concomitant]
  26. IMIPRAMINE [Concomitant]

REACTIONS (6)
  - ILEUS [None]
  - NEUROGENIC BLADDER [None]
  - OPEN WOUND [None]
  - PARAPLEGIA [None]
  - STAPHYLOCOCCAL ABSCESS [None]
  - URINARY TRACT INFECTION [None]
